FAERS Safety Report 8837124 (Version 2)
Quarter: 2012Q4

REPORT INFORMATION
  Report Type: Report from Study
  Country: DK (occurrence: DK)
  Receive Date: 20121011
  Receipt Date: 20121114
  Transmission Date: 20130627
  Serious: Yes (Hospitalization)
  Sender: FDA-Public Use
  Company Number: DK-ROCHE-1141281

PATIENT
  Age: 69 Year
  Sex: Female
  Weight: 56 kg

DRUGS (10)
  1. RITUXIMAB [Suspect]
     Indication: MALIGNANT LYMPHOID NEOPLASM
     Dosage: date of last dose prior to SAE was 19/Sep/2012.
     Route: 042
  2. RITUXIMAB [Suspect]
     Dosage: Cycle one
     Route: 042
  3. RITUXIMAB [Suspect]
     Route: 042
     Dates: start: 20110309
  4. PREDNISONE [Suspect]
     Indication: MALIGNANT LYMPHOID NEOPLASM
     Dosage: Cycle one
     Route: 048
  5. CYCLOPHOSPHAMIDE [Suspect]
     Indication: MALIGNANT LYMPHOID NEOPLASM
     Dosage: Cycle one
     Route: 042
  6. DOXORUBICIN [Suspect]
     Indication: MALIGNANT LYMPHOID NEOPLASM
     Dosage: Cycle one
     Route: 042
  7. VINCRISTIN [Suspect]
     Indication: MALIGNANT LYMPHOID NEOPLASM
     Dosage: Cycle one
     Route: 042
  8. METHOTREXATE [Suspect]
     Indication: MALIGNANT LYMPHOID NEOPLASM
     Route: 065
     Dates: start: 20110223
  9. PEGFILGRASTIM [Suspect]
     Indication: MALIGNANT LYMPHOID NEOPLASM
     Dosage: cycle one
     Route: 065
  10. SULFAMETHOXAZOLE/TRIMETHOPRIM [Concomitant]
     Route: 065
     Dates: start: 20110224

REACTIONS (1)
  - Encephalopathy [Not Recovered/Not Resolved]
